FAERS Safety Report 6284429-5 (Version None)
Quarter: 2009Q3

REPORT INFORMATION
  Report Type: 
  Country: None (occurrence: None)
  Receive Date: 20090727
  Receipt Date: 20090715
  Transmission Date: 20100115
  Serious: Yes (Life-Threatening)
  Sender: FDA-Public Use
  Company Number: FR-ROCHE-643864

PATIENT
  Age: 45 Year
  Sex: Male

DRUGS (4)
  1. PEGASYS [Suspect]
     Indication: HEPATITIS C
     Route: 058
     Dates: start: 20080101
  2. PEGASYS [Suspect]
     Route: 058
  3. COPEGUS [Suspect]
     Indication: HEPATITIS C
     Route: 048
     Dates: start: 20080101
  4. ACTOS [Suspect]
     Dosage: SIGNIFICANT INCREASE OF ACTOS DOSE
     Route: 065

REACTIONS (3)
  - CARDIAC TAMPONADE [None]
  - GENERALISED OEDEMA [None]
  - PERICARDITIS [None]
